FAERS Safety Report 23072833 (Version 3)
Quarter: 2023Q4

REPORT INFORMATION
  Report Type: Report from Study
  Country: US (occurrence: US)
  Receive Date: 20231017
  Receipt Date: 20231229
  Transmission Date: 20240110
  Serious: No
  Sender: FDA-Public Use
  Company Number: US-002147023-NVSC2023US219455

PATIENT
  Sex: Female

DRUGS (1)
  1. KESIMPTA [Suspect]
     Active Substance: OFATUMUMAB
     Indication: Relapsing multiple sclerosis
     Dosage: 20 MG, QMO
     Route: 058

REACTIONS (10)
  - Feeling abnormal [Unknown]
  - Gait disturbance [Unknown]
  - Musculoskeletal disorder [Unknown]
  - Dyspnoea [Unknown]
  - Weight increased [Unknown]
  - Pollakiuria [Unknown]
  - Rhinorrhoea [Unknown]
  - Sleep disorder [Unknown]
  - Drug ineffective [Unknown]
  - Pain [Unknown]
